FAERS Safety Report 6845072-X (Version None)
Quarter: 2010Q3

REPORT INFORMATION
  Report Type: 
  Country: None (occurrence: None)
  Receive Date: 20100715
  Receipt Date: 20070815
  Transmission Date: 20110219
  Serious: No
  Sender: FDA-Public Use
  Company Number: US-PFIZER INC-2007068160

PATIENT
  Sex: Male
  Weight: 90.7 kg

DRUGS (4)
  1. CHANTIX [Suspect]
     Indication: EX-TOBACCO USER
     Dates: start: 20070301, end: 20070301
  2. ANTITHROMBOTIC AGENTS [Concomitant]
  3. ANTIHYPERTENSIVES [Concomitant]
  4. PLAVIX [Concomitant]

REACTIONS (3)
  - CONSTIPATION [None]
  - DIZZINESS [None]
  - NAUSEA [None]
